FAERS Safety Report 9557847 (Version 1)
Quarter: 2013Q3

REPORT INFORMATION
  Report Type: Spontaneous
  Country: US (occurrence: None)
  Receive Date: 20130726
  Receipt Date: 20130726
  Transmission Date: 20140515
  Serious: Yes (Hospitalization)
  Sender: FDA-Public Use
  Company Number: UTC-026953

PATIENT
  Age: 42 Year
  Sex: Female

DRUGS (1)
  1. REMODULIN [Suspect]
     Indication: ESSENTIAL HYPERTENSION
     Dosage: 0.09 UG/KG 1 IN 1 MIN
     Dates: start: 20100224

REACTIONS (1)
  - Device related infection [None]
